FAERS Safety Report 4596084-0 (Version None)
Quarter: 2005Q1

REPORT INFORMATION
  Report Type: 
  Country: None (occurrence: None)
  Receive Date: 20050228
  Receipt Date: 20050228
  Transmission Date: 20050727
  Serious: Yes (Hospitalization, Other)
  Sender: FDA-Public Use
  Company Number: None

PATIENT
  Age: 36 Year
  Sex: Female
  Weight: 72.5755 kg

DRUGS (1)
  1. TOPAMAX [Suspect]
     Indication: MIGRAINE
     Dosage: 50 MG -} 400 MG/DAY
     Dates: start: 20020516, end: 20050901

REACTIONS (3)
  - ANOREXIA NERVOSA [None]
  - EATING DISORDER [None]
  - WEIGHT FLUCTUATION [None]
